FAERS Safety Report 6199065-9 (Version None)
Quarter: 2009Q2

REPORT INFORMATION
  Report Type: 
  Country: None (occurrence: None)
  Receive Date: 20090522
  Receipt Date: 20090514
  Transmission Date: 20091009
  Serious: Yes (Life-Threatening, Disabling, Other)
  Sender: FDA-Public Use
  Company Number: US-ELI_LILLY_AND_COMPANY-US200905003091

PATIENT
  Sex: Female
  Weight: 56.689 kg

DRUGS (4)
  1. EVISTA [Suspect]
     Dosage: UNK, UNKNOWN
     Route: 065
  2. AMITRIPTLINE HYDROCHLORIDE TAB [Concomitant]
     Dosage: 50 MG, UNKNOWN
     Route: 065
  3. AMBIEN [Concomitant]
     Dosage: 5 MG, EACH EVENING
     Route: 065
  4. LEVOXYL [Concomitant]
     Dosage: 100 UG, UNKNOWN
     Route: 065

REACTIONS (9)
  - CHOKING [None]
  - COELIAC DISEASE [None]
  - DIARRHOEA [None]
  - IMPLANT SITE EFFUSION [None]
  - LYMPHADENOPATHY [None]
  - MALNUTRITION [None]
  - MOVEMENT DISORDER [None]
  - TRANSIENT ISCHAEMIC ATTACK [None]
  - WEIGHT DECREASED [None]
